FAERS Safety Report 8925275 (Version 2)
Quarter: 2012Q4

REPORT INFORMATION
  Report Type: Report from Study
  Country: AU (occurrence: AU)
  Receive Date: 20121126
  Receipt Date: 20121205
  Transmission Date: 20130627
  Serious: Yes (Hospitalization)
  Sender: FDA-Public Use
  Company Number: AU-ACTELION-A-CH2012-74699

PATIENT
  Age: 69 Year
  Sex: Female
  Weight: 60 kg

DRUGS (4)
  1. TRACLEER [Suspect]
     Indication: PULMONARY HYPERTENSION
     Dosage: 125 mg, bid
     Route: 048
     Dates: start: 20100701
  2. TRACLEER [Suspect]
     Dosage: 62.5 mg, bid
     Route: 048
     Dates: start: 20100601, end: 20100701
  3. WARFARIN [Concomitant]
  4. SPIRONOLACTONE [Concomitant]
     Dosage: UNK
     Dates: start: 20100421

REACTIONS (8)
  - Hip arthroplasty [Recovered/Resolved with Sequelae]
  - Post procedural haematoma [Recovered/Resolved with Sequelae]
  - Osteoarthritis [Unknown]
  - Liver function test abnormal [Recovered/Resolved]
  - Blood alkaline phosphatase increased [Recovered/Resolved]
  - Aspartate aminotransferase increased [Recovered/Resolved]
  - Alanine aminotransferase increased [Recovered/Resolved]
  - Liver injury [None]
